FAERS Safety Report 10384396 (Version 2)
Quarter: 2014Q3

REPORT INFORMATION
  Report Type: Spontaneous
  Country: PK (occurrence: PK)
  Receive Date: 20140814
  Receipt Date: 20140828
  Transmission Date: 20150326
  Serious: Yes (Death, Hospitalization)
  Sender: FDA-Public Use
  Company Number: PK-PFIZER INC-2014223936

PATIENT
  Age: 60 Year
  Sex: Male
  Weight: 60 kg

DRUGS (1)
  1. SUTENT [Suspect]
     Active Substance: SUNITINIB MALATE
     Indication: METASTATIC RENAL CELL CARCINOMA
     Dosage: 50 MG, 1X/DAY (OR 25 MG TWICE A DAY)
     Route: 048

REACTIONS (5)
  - Cardiopulmonary failure [Fatal]
  - Decreased appetite [Unknown]
  - Metastatic renal cell carcinoma [Fatal]
  - Disease progression [Fatal]
  - Asthenia [Unknown]

NARRATIVE: CASE EVENT DATE: 20140525
